FAERS Safety Report 11813897 (Version 1)
Quarter: 2015Q4

REPORT INFORMATION
  Report Type: Spontaneous
  Country: US (occurrence: None)
  Receive Date: 20151208
  Receipt Date: 20151208
  Transmission Date: 20160305
  Serious: Yes (Hospitalization)
  Sender: FDA-Public Use
  Company Number: None

PATIENT
  Age: 76 Year
  Sex: Female
  Weight: 65.8 kg

DRUGS (20)
  1. SOMA [Suspect]
     Active Substance: CARISOPRODOL
     Indication: PAIN
     Dosage: 350MG QPM PO
     Route: 048
  2. LASIX [Concomitant]
     Active Substance: FUROSEMIDE
  3. SENOKOT [Concomitant]
     Active Substance: SENNOSIDES
  4. DESYREL [Concomitant]
     Active Substance: TRAZODONE HYDROCHLORIDE
  5. TOPROL XL [Concomitant]
     Active Substance: METOPROLOL SUCCINATE
  6. MAALOX ANTACID [Concomitant]
     Active Substance: ALUMINUM HYDROXIDE\DIMETHICONE\MAGNESIUM HYDROXIDE
  7. TRAZODONE [Suspect]
     Active Substance: TRAZODONE HYDROCHLORIDE
  8. VITE [Concomitant]
  9. DULOXETINE. [Suspect]
     Active Substance: DULOXETINE
     Indication: PAIN
     Route: 048
  10. ASCORBIC ACID. [Concomitant]
     Active Substance: ASCORBIC ACID
  11. LANOXIN [Concomitant]
     Active Substance: DIGOXIN
  12. ROBITUS [Concomitant]
  13. ASA [Concomitant]
     Active Substance: ASPIRIN
  14. MS CONTIN [Suspect]
     Active Substance: MORPHINE SULFATE
  15. LIPITOR [Concomitant]
     Active Substance: ATORVASTATIN CALCIUM
  16. MOM [Concomitant]
     Active Substance: MAGNESIUM HYDROXIDE
  17. VERELAN [Concomitant]
     Active Substance: VERAPAMIL HYDROCHLORIDE
  18. OCUVITE [Concomitant]
     Active Substance: VITAMINS
  19. GABAPENTIN 800MG QPM [Suspect]
     Active Substance: GABAPENTIN
  20. APAP [Concomitant]
     Active Substance: ACETAMINOPHEN

REACTIONS (4)
  - Drug abuse [None]
  - Somnolence [None]
  - Agitation [None]
  - Sedation [None]

NARRATIVE: CASE EVENT DATE: 20150206
